FAERS Safety Report 11246440 (Version 1)
Quarter: 2015Q3

REPORT INFORMATION
  Report Type: Spontaneous
  Country: US (occurrence: None)
  Receive Date: 20150706
  Receipt Date: 20150706
  Transmission Date: 20151125
  Serious: Yes (Other)
  Sender: FDA-Public Use
  Company Number: None

PATIENT
  Age: 25 Year
  Sex: Female
  Weight: 58.97 kg

DRUGS (6)
  1. LAMOTRIGINE EXTENDED RELEASE [Suspect]
     Active Substance: LAMOTRIGINE
     Indication: SEIZURE
     Dosage: TAKEN BY MOUTH
     Route: 048
     Dates: start: 20150630, end: 20150703
  2. ZYRTEC [Concomitant]
     Active Substance: CETIRIZINE HYDROCHLORIDE
  3. ADVIL [Concomitant]
     Active Substance: IBUPROFEN
  4. ZANTAC [Concomitant]
     Active Substance: RANITIDINE HYDROCHLORIDE
  5. LAMOTRIGINE EXTENDED RELEASE [Suspect]
     Active Substance: LAMOTRIGINE
     Indication: ANXIETY
     Dosage: TAKEN BY MOUTH
     Route: 048
     Dates: start: 20150630, end: 20150703
  6. KAVA PASTE (KONA KAVA FARM) [Concomitant]

REACTIONS (9)
  - Asthenia [None]
  - Contusion [None]
  - Headache [None]
  - Epistaxis [None]
  - Abnormal dreams [None]
  - Discomfort [None]
  - Fatigue [None]
  - Photophobia [None]
  - Hyperaesthesia [None]

NARRATIVE: CASE EVENT DATE: 20150703
